FAERS Safety Report 9019696 (Version 2)
Quarter: 2013Q3

REPORT INFORMATION
  Report Type: Report from Study
  Country: DE (occurrence: DE)
  Receive Date: 20130118
  Receipt Date: 20130814
  Transmission Date: 20140515
  Serious: Yes (Other)
  Sender: FDA-Public Use
  Company Number: PHHY2012DE068527

PATIENT
  Sex: Female

DRUGS (1)
  1. GILENYA [Suspect]
     Indication: MULTIPLE SCLEROSIS
     Dosage: 0.5 MG, QD
     Route: 048

REACTIONS (6)
  - Epilepsy [Unknown]
  - Loss of consciousness [Unknown]
  - Sleep disorder [Not Recovered/Not Resolved]
  - Tremor [Recovered/Resolved]
  - Road traffic accident [Unknown]
  - Electroencephalogram abnormal [Unknown]
